FAERS Safety Report 24240966 (Version 3)
Quarter: 2024Q3

REPORT INFORMATION
  Report Type: Spontaneous
  Country: FR (occurrence: FR)
  Receive Date: 20240823
  Receipt Date: 20240903
  Transmission Date: 20241016
  Serious: Yes (Hospitalization, Other)
  Sender: BRISTOL MYERS SQUIBB
  Company Number: None

PATIENT
  Age: 67 Year
  Sex: Male
  Weight: 81 kg

DRUGS (2)
  1. YERVOY [Suspect]
     Active Substance: IPILIMUMAB
     Indication: Malignant melanoma
     Dosage: A TOTAL OF 4 CYCLES
     Route: 042
     Dates: start: 20240207, end: 20240424
  2. OPDIVO [Suspect]
     Active Substance: NIVOLUMAB
     Indication: Malignant melanoma
     Dosage: TOTAL 4 CYCLES
     Route: 042
     Dates: start: 20240207, end: 20240424

REACTIONS (6)
  - Cholestasis [Recovered/Resolved]
  - Autoimmune neuropathy [Recovering/Resolving]
  - Optic neuritis [Recovering/Resolving]
  - Autonomic nervous system imbalance [Recovering/Resolving]
  - Hyponatraemia [Recovering/Resolving]
  - Cell death [Recovered/Resolved]

NARRATIVE: CASE EVENT DATE: 20240610
